FAERS Safety Report 16433224 (Version 1)
Quarter: 2019Q2

REPORT INFORMATION
  Report Type: Spontaneous
  Country: US (occurrence: US)
  Receive Date: 20190614
  Receipt Date: 20190614
  Transmission Date: 20190711
  Serious: No
  Sender: FDA-Public Use
  Company Number: US-JNJFOC-20170406123

PATIENT
  Sex: Female
  Weight: 155 kg

DRUGS (13)
  1. MUCINEX [Concomitant]
     Active Substance: GUAIFENESIN
  2. PREDNISONE. [Concomitant]
     Active Substance: PREDNISONE
  3. PRIMIDONE. [Concomitant]
     Active Substance: PRIMIDONE
  4. ADVAIR HFA [Concomitant]
     Active Substance: FLUTICASONE PROPIONATE\SALMETEROL XINAFOATE
  5. ZOLPIDEM [Concomitant]
     Active Substance: ZOLPIDEM\ZOLPIDEM TARTRATE
  6. CLARITIN [Concomitant]
     Active Substance: LORATADINE
  7. LASIX [Concomitant]
     Active Substance: FUROSEMIDE
  8. AMIODARONE [Concomitant]
     Active Substance: AMIODARONE
  9. ELIQUIS [Concomitant]
     Active Substance: APIXABAN
  10. CARDIZEM [Concomitant]
     Active Substance: DILTIAZEM HYDROCHLORIDE
  11. IMBRUVICA [Suspect]
     Active Substance: IBRUTINIB
     Indication: PRODUCT USED FOR UNKNOWN INDICATION
     Route: 048
     Dates: start: 20170208, end: 2017
  12. XANAX [Concomitant]
     Active Substance: ALPRAZOLAM
  13. IRON [Concomitant]
     Active Substance: IRON

REACTIONS (1)
  - Asthenia [Unknown]

NARRATIVE: CASE EVENT DATE: 2017
